FAERS Safety Report 7844589-9 (Version None)
Quarter: 2011Q4

REPORT INFORMATION
  Report Type: 
  Country: None (occurrence: None)
  Receive Date: 20111025
  Receipt Date: 20111018
  Transmission Date: 20120403
  Serious: Yes (Other)
  Sender: FDA-Public Use
  Company Number: US-JNJFOC-20110904701

PATIENT
  Sex: Female

DRUGS (8)
  1. A MULTIVITAMIN [Concomitant]
     Route: 065
  2. PENTASA [Concomitant]
     Dosage: FOR 30 DAYS
     Route: 048
  3. ENTOCORT EC [Concomitant]
     Indication: COLITIS ULCERATIVE
     Route: 048
  4. CADUET [Concomitant]
     Route: 065
  5. REMICADE [Suspect]
     Indication: COLITIS ULCERATIVE
     Route: 042
     Dates: end: 20110101
  6. FISH OIL [Concomitant]
     Route: 065
  7. CELEXA [Concomitant]
     Route: 065
  8. ACIDOPHILUS [Concomitant]
     Route: 065

REACTIONS (1)
  - BREAST CANCER [None]
